FAERS Safety Report 10670510 (Version 1)
Quarter: 2014Q4

REPORT INFORMATION
  Report Type: Spontaneous
  Country: PL (occurrence: None)
  Receive Date: 20141219
  Receipt Date: 20141219
  Transmission Date: 20150529
  Serious: Yes (Death, Hospitalization)
  Sender: FDA-Public Use
  Company Number: FK201406179

PATIENT
  Age: 22 Year
  Sex: Female

DRUGS (7)
  1. CLARITHROMYCIN (CLARITHROMYCIN) [Concomitant]
     Active Substance: CLARITHROMYCIN
  2. RITUXIMAB (RITUXIMAB) (RITUXIMAB) [Suspect]
     Active Substance: RITUXIMAB
     Indication: IMMUNOSUPPRESSANT DRUG THERAPY
     Dosage: 4 WEEK INTERVALS
  3. METHYLPREDNISOLONE. [Suspect]
     Active Substance: METHYLPREDNISOLONE
     Indication: FOCAL SEGMENTAL GLOMERULOSCLEROSIS
  4. IMIPENEM (IMIPENEM) [Concomitant]
     Active Substance: IMIPENEM
  5. GANCICLOVIR (GANCICLOVIR) [Concomitant]
  6. PREDNISONE. [Suspect]
     Active Substance: PREDNISONE
     Indication: FOCAL SEGMENTAL GLOMERULOSCLEROSIS
  7. PREDNISOLONE (PREDNISOLONE) [Suspect]
     Active Substance: PREDNISOLONE
     Indication: FOCAL SEGMENTAL GLOMERULOSCLEROSIS

REACTIONS (5)
  - Multi-organ failure [None]
  - Klebsiella test positive [None]
  - Sepsis [None]
  - Pneumocystis jirovecii pneumonia [None]
  - Culture urine positive [None]
